FAERS Safety Report 4693340-2 (Version None)
Quarter: 2005Q2

REPORT INFORMATION
  Report Type: 
  Country: None (occurrence: None)
  Receive Date: 20050617
  Receipt Date: 20050311
  Transmission Date: 20051028
  Serious: Yes (Disabling)
  Sender: FDA-Public Use
  Company Number: US-MERCK-0503USA02720

PATIENT
  Age: 50 Year
  Sex: Male
  Weight: 79 kg

DRUGS (6)
  1. VIOXX [Suspect]
     Indication: ARTHRALGIA
     Route: 048
     Dates: start: 20000401, end: 20040101
  2. VIOXX [Suspect]
     Route: 065
     Dates: start: 20000901, end: 20030101
  3. TYLENOL [Concomitant]
     Route: 065
  4. EFFEXOR [Concomitant]
     Route: 065
     Dates: start: 20031101, end: 20040301
  5. BEXTRA [Concomitant]
     Route: 065
     Dates: start: 20040101
  6. ASPIRIN [Concomitant]
     Route: 065
     Dates: start: 20040101

REACTIONS (10)
  - APHASIA [None]
  - ARTHRALGIA [None]
  - BLOOD CHOLESTEROL INCREASED [None]
  - CEREBROVASCULAR ACCIDENT [None]
  - CHEST PAIN [None]
  - DYSPEPSIA [None]
  - FEELING ABNORMAL [None]
  - HYPERSENSITIVITY [None]
  - MYOCARDIAL INFARCTION [None]
  - THROMBOSIS [None]
